FAERS Safety Report 7985050-0 (Version None)
Quarter: 2011Q4

REPORT INFORMATION
  Report Type: 
  Country: None (occurrence: None)
  Receive Date: 20111216
  Receipt Date: 20111205
  Transmission Date: 20120403
  Serious: Yes (Other)
  Sender: FDA-Public Use
  Company Number: US-SANOFI-AVENTIS-2011SA081065

PATIENT

DRUGS (5)
  1. ANTINEOPLASTIC AGENTS [Suspect]
     Indication: NON-HODGKIN'S LYMPHOMA
     Dosage: ON DAY 2 OF 28 DAY CYCLE
     Route: 065
  2. DEXAMETHASONE TAB [Suspect]
     Indication: NON-HODGKIN'S LYMPHOMA
     Dosage: DAYS 1 THROUGH 5
     Route: 048
  3. FLUDARABINE PHOSPHATE [Suspect]
     Indication: NON-HODGKIN'S LYMPHOMA
     Dosage: ON DAYS 2 THROUGH 4
     Route: 042
  4. RITUXIMAB [Suspect]
     Indication: NON-HODGKIN'S LYMPHOMA
     Dosage: DAY 1
     Route: 042
  5. ANTINEOPLASTIC AGENTS [Suspect]
     Dosage: ON DAY 2 OF 28 DAY CYCLE
     Route: 065

REACTIONS (8)
  - FATIGUE [None]
  - ANAEMIA [None]
  - NAUSEA [None]
  - CONSTIPATION [None]
  - NEUTROPENIA [None]
  - THROMBOCYTOPENIA [None]
  - LEUKOPENIA [None]
  - LYMPHOPENIA [None]
